FAERS Safety Report 17265773 (Version 1)
Quarter: 2020Q1

REPORT INFORMATION
  Report Type: Spontaneous
  Country: US (occurrence: US)
  Receive Date: 20200114
  Receipt Date: 20200114
  Transmission Date: 20200409
  Serious: Yes (Other)
  Sender: FDA-Public Use
  Company Number: US-SA-2020SA005626

PATIENT
  Age: 60 Year
  Sex: Male

DRUGS (1)
  1. GOLD BOND ORIGINAL STRENGTH POWDER [Suspect]
     Active Substance: MENTHOL\ZINC OXIDE
     Dosage: FIOM THEMID 1960^S UNTIL THE EARLY 1980^S

REACTIONS (6)
  - Unevaluable event [Unknown]
  - Mesothelioma [Unknown]
  - Multiple injuries [Not Recovered/Not Resolved]
  - Exposure to chemical pollution [Unknown]
  - Somatic symptom disorder [Unknown]
  - Pain [Unknown]
